FAERS Safety Report 6712716-2 (Version None)
Quarter: 2010Q2

REPORT INFORMATION
  Report Type: 
  Country: None (occurrence: None)
  Receive Date: 20100506
  Receipt Date: 20100426
  Transmission Date: 20101027
  Serious: No
  Sender: FDA-Public Use
  Company Number: US-JNJFOC-20100407571

PATIENT
  Sex: Female
  Weight: 56.7 kg

DRUGS (2)
  1. FENTANYL CITRATE [Suspect]
     Indication: FIBROMYALGIA
     Dosage: 25UG/HR AND 25UG/HR
     Route: 062
  2. FENTANYL CITRATE [Suspect]
     Indication: FIBROMYALGIA
     Dosage: 25UG/HR AND 25UG/HR
     Route: 062

REACTIONS (2)
  - APPLICATION SITE RASH [None]
  - INAPPROPRIATE SCHEDULE OF DRUG ADMINISTRATION [None]
